FAERS Safety Report 7588335-5 (Version None)
Quarter: 2011Q3

REPORT INFORMATION
  Report Type: 
  Country: None (occurrence: None)
  Receive Date: 20110705
  Receipt Date: 20100621
  Transmission Date: 20111222
  Serious: Yes (Death, Other)
  Sender: FDA-Public Use
  Company Number: US-BAYER-201026758NA

PATIENT
  Age: 64 Year
  Sex: Male

DRUGS (15)
  1. RED BLOOD CELLS [Concomitant]
     Dosage: UNK
     Route: 042
     Dates: start: 20020802
  2. CLOPIDOGREL [Concomitant]
     Dosage: LONG TERM USE
  3. DICLOFENAC SODIUM [Concomitant]
     Dosage: LONG TERM USE
  4. RED BLOOD CELLS [Concomitant]
     Indication: PRODUCT USED FOR UNKNOWN INDICATION
     Dosage: SEVERAL UNITS
     Route: 042
  5. METOPROLOL TARTRATE [Concomitant]
     Dosage: LONG TERM USE
  6. TRASYLOL [Suspect]
     Indication: REVISION OF INTERNAL FIXATION
     Dosage: 1 MILLION UNITS
     Dates: start: 20020802, end: 20020802
  7. LISINOPRIL [Concomitant]
     Dosage: 10 MG, BID, LONG TERM USE
     Route: 048
  8. OXYCODONE HCL [Concomitant]
     Dosage: LONG TERM USE
  9. VANCOMYCIN [Concomitant]
     Dosage: UNK
     Dates: start: 20020802, end: 20020806
  10. ATENOLOL [Concomitant]
     Dosage: LONG TERM USE
  11. CEFAZOLIN [Concomitant]
     Dosage: 1 G, UNK
     Route: 042
     Dates: start: 20020802
  12. HEPARIN [Concomitant]
     Dosage: DRIP
     Dates: start: 20021026, end: 20021029
  13. PLATELETS [Concomitant]
     Dosage: UNK
     Route: 042
     Dates: start: 20020802
  14. FUROSEMIDE [Concomitant]
     Dosage: 80 MG, BID, LONG TERM USE
  15. IBUPROFEN [Concomitant]
     Dosage: LONG TERM USE

REACTIONS (10)
  - RENAL IMPAIRMENT [None]
  - DEPRESSION [None]
  - RENAL FAILURE [None]
  - INJURY [None]
  - ANXIETY [None]
  - FEAR [None]
  - PAIN [None]
  - RENAL INJURY [None]
  - EMOTIONAL DISTRESS [None]
  - STRESS [None]
